FAERS Safety Report 7875289-7 (Version None)
Quarter: 2011Q4

REPORT INFORMATION
  Report Type: 
  Country: None (occurrence: None)
  Receive Date: 20111031
  Receipt Date: 20111024
  Transmission Date: 20120403
  Serious: Yes (Hospitalization, Other)
  Sender: FDA-Public Use
  Company Number: US-AMGEN-USASP2011054893

PATIENT
  Sex: Female

DRUGS (2)
  1. METHOTREXATE [Concomitant]
     Dosage: UNK
     Dates: start: 20110801
  2. ENBREL [Suspect]
     Indication: PSORIATIC ARTHROPATHY
     Dosage: 50 MG, QWK
     Dates: end: 20091001

REACTIONS (6)
  - BLOOD GLUCOSE INCREASED [None]
  - ARTHRALGIA [None]
  - DIABETES MELLITUS [None]
  - COLON CANCER [None]
  - INTESTINAL OBSTRUCTION [None]
  - PAIN IN EXTREMITY [None]
